FAERS Safety Report 14280529 (Version 1)
Quarter: 2017Q4

REPORT INFORMATION
  Report Type: Spontaneous
  Country: US (occurrence: None)
  Receive Date: 20171212
  Receipt Date: 20171212
  Transmission Date: 20180321
  Serious: Yes (Hospitalization, Disabling)
  Sender: FDA-Public Use
  Company Number: None

PATIENT
  Age: 59 Year
  Sex: Female
  Weight: 69.4 kg

DRUGS (12)
  1. OSPHENA [Concomitant]
     Active Substance: OSPEMIFENE
  2. REMERON [Concomitant]
     Active Substance: MIRTAZAPINE
  3. CLONAZEPAM. [Concomitant]
     Active Substance: CLONAZEPAM
  4. REGLAN [Concomitant]
     Active Substance: METOCLOPRAMIDE HYDROCHLORIDE
  5. PERCOCET [Concomitant]
     Active Substance: ACETAMINOPHEN\OXYCODONE HYDROCHLORIDE
  6. EVOXAC [Concomitant]
     Active Substance: CEVIMELINE HYDROCHLORIDE
  7. OMEPRAZOLE. [Concomitant]
     Active Substance: OMEPRAZOLE
  8. REMICADE [Concomitant]
     Active Substance: INFLIXIMAB
  9. MULTIVITAMIN [Concomitant]
     Active Substance: VITAMINS
  10. FISH OIL [Concomitant]
     Active Substance: FISH OIL
  11. RECLAST [Suspect]
     Active Substance: ZOLEDRONIC ACID
     Indication: OSTEOPOROSIS
     Dosage: 1X/YEAR IV INFUSION
     Route: 042
     Dates: start: 20171114, end: 20171114
  12. MORPHINE SULFATE. [Concomitant]
     Active Substance: MORPHINE SULFATE

REACTIONS (1)
  - Pyrexia [None]

NARRATIVE: CASE EVENT DATE: 20171114
